FAERS Safety Report 8096852-7 (Version None)
Quarter: 2012Q1

REPORT INFORMATION
  Report Type: 
  Country: None (occurrence: None)
  Receive Date: 20120129
  Receipt Date: 20111205
  Transmission Date: 20120608
  Serious: No
  Sender: FDA-Public Use
  Company Number: US-ABBOTT-11P-163-0880713-00

PATIENT
  Age: 54 Year
  Sex: Male

DRUGS (4)
  1. METHOTREXATE [Concomitant]
     Indication: PRODUCT USED FOR UNKNOWN INDICATION
     Dosage: 15 MG ONCE A WEEK
  2. UNKNOWN EYE DROPS [Concomitant]
     Indication: ABNORMAL SENSATION IN EYE
     Dosage: DAILY
     Route: 047
  3. HUMIRA [Suspect]
     Indication: RETINAL VASCULITIS
     Dates: start: 20110909
  4. FOLIC ACID [Concomitant]
     Indication: PRODUCT USED FOR UNKNOWN INDICATION
     Dosage: DAILY

REACTIONS (3)
  - BALANCE DISORDER [None]
  - PAIN [None]
  - FALL [None]
